FAERS Safety Report 25371999 (Version 1)
Quarter: 2025Q2

REPORT INFORMATION
  Report Type: Spontaneous
  Country: US (occurrence: US)
  Receive Date: 20250529
  Receipt Date: 20250529
  Transmission Date: 20250717
  Serious: Yes (Other)
  Sender: RANBAXY
  Company Number: US-SUN PHARMACEUTICAL INDUSTRIES LTD-2025R1-505793

PATIENT
  Age: 69 Year
  Sex: Female

DRUGS (6)
  1. GEMCITABINE [Suspect]
     Active Substance: GEMCITABINE
     Indication: Ductal adenocarcinoma of pancreas
     Route: 065
  2. PACLITAXEL [Suspect]
     Active Substance: PACLITAXEL
     Indication: Ductal adenocarcinoma of pancreas
     Route: 065
  3. LEUCOVORIN CALCIUM [Concomitant]
     Active Substance: LEUCOVORIN CALCIUM
     Indication: Ductal adenocarcinoma of pancreas
     Route: 065
  4. OXALIPLATIN [Concomitant]
     Active Substance: OXALIPLATIN
     Indication: Ductal adenocarcinoma of pancreas
     Route: 065
  5. IRINOTECAN [Concomitant]
     Active Substance: IRINOTECAN
     Indication: Ductal adenocarcinoma of pancreas
     Route: 065
  6. FLUOROURACIL [Concomitant]
     Active Substance: FLUOROURACIL
     Indication: Ductal adenocarcinoma of pancreas
     Route: 065

REACTIONS (1)
  - Retinal toxicity [Unknown]
